FAERS Safety Report 4585684-X (Version None)
Quarter: 2005Q1

REPORT INFORMATION
  Report Type: 
  Country: None (occurrence: None)
  Receive Date: 20050209
  Receipt Date: 20050124
  Transmission Date: 20050727
  Serious: Yes (Other)
  Sender: FDA-Public Use
  Company Number: 200510059BBE

PATIENT

DRUGS (1)
  1. GAMUNEX [Suspect]
     Dosage: INTRAVENOUS
     Route: 042

REACTIONS (2)
  - HEPATITIS B SURFACE ANTIGEN POSITIVE [None]
  - HEPATITIS E ANTIGEN POSITIVE [None]
